FAERS Safety Report 6368181-0 (Version None)
Quarter: 2009Q3

REPORT INFORMATION
  Report Type: 
  Country: None (occurrence: None)
  Receive Date: 20090922
  Receipt Date: 20090911
  Transmission Date: 20100115
  Serious: Yes (Other)
  Sender: FDA-Public Use
  Company Number: PHHY2009MX39491

PATIENT
  Age: 25 Year
  Sex: Female

DRUGS (1)
  1. LAMISIL [Suspect]
     Indication: ONYCHOMYCOSIS
     Dosage: 1 TABLET (250MG) PER DAY
     Route: 048
     Dates: start: 20090601, end: 20090801

REACTIONS (2)
  - HERNIA [None]
  - SURGERY [None]
